FAERS Safety Report 22135235 (Version 3)
Quarter: 2025Q2

REPORT INFORMATION
  Report Type: Report from Study
  Country: GB (occurrence: GB)
  Receive Date: 20230324
  Receipt Date: 20250518
  Transmission Date: 20250717
  Serious: Yes (Hospitalization, Other)
  Sender: NOVARTIS
  Company Number: GB-002147023-NVSC2023GB061435

PATIENT
  Sex: Male

DRUGS (6)
  1. PLUVICTO [Suspect]
     Active Substance: LUTETIUM LU-177 VIPIVOTIDE TETRAXETAN
     Indication: Hormone-refractory prostate cancer
     Route: 042
     Dates: start: 20220930, end: 20220930
  2. PLUVICTO [Suspect]
     Active Substance: LUTETIUM LU-177 VIPIVOTIDE TETRAXETAN
     Route: 042
     Dates: start: 20221125, end: 20221125
  3. PLUVICTO [Suspect]
     Active Substance: LUTETIUM LU-177 VIPIVOTIDE TETRAXETAN
     Route: 042
     Dates: start: 20230210, end: 20230210
  4. PLUVICTO [Suspect]
     Active Substance: LUTETIUM LU-177 VIPIVOTIDE TETRAXETAN
     Route: 042
  5. PLUVICTO [Suspect]
     Active Substance: LUTETIUM LU-177 VIPIVOTIDE TETRAXETAN
     Route: 042
  6. PLUVICTO [Suspect]
     Active Substance: LUTETIUM LU-177 VIPIVOTIDE TETRAXETAN
     Route: 042

REACTIONS (12)
  - Pulmonary embolism [Unknown]
  - Toxicity to various agents [Unknown]
  - Pneumonia [Unknown]
  - Dyspnoea [Unknown]
  - Pancytopenia [Unknown]
  - Thrombocytopenia [Unknown]
  - Neutropenic sepsis [Unknown]
  - COVID-19 [Unknown]
  - Malaise [Not Recovered/Not Resolved]
  - Asthenia [Unknown]
  - Fatigue [Unknown]
  - Insomnia [Unknown]
